FAERS Safety Report 10032934 (Version 1)
Quarter: 2014Q1

REPORT INFORMATION
  Report Type: Spontaneous
  Country: GB (occurrence: GB)
  Receive Date: 20140324
  Receipt Date: 20140324
  Transmission Date: 20141002
  Serious: Yes (Other)
  Sender: FDA-Public Use
  Company Number: GB-PFIZER INC-2014078706

PATIENT
  Age: 71 Year
  Sex: Male

DRUGS (8)
  1. DOXAZOSIN MESILATE [Suspect]
     Dosage: 1 MG, UNK
     Route: 065
     Dates: start: 20140207, end: 20140207
  2. ATENOLOL [Suspect]
     Dosage: 50 MG, UNK
     Route: 065
     Dates: start: 2006, end: 20140207
  3. IRBESARTAN [Suspect]
     Indication: HYPERTENSION
     Dosage: 300 MG, UNK
     Route: 065
     Dates: start: 20131209, end: 20140207
  4. BENDROFLUMETHIAZIDE [Suspect]
     Dosage: 2.5 MG, UNK
     Route: 065
     Dates: start: 2004, end: 20140207
  5. LERCANIDIPINE HYDROCHLORIDE [Suspect]
     Indication: HYPERTENSION
     Dosage: 10 MG, UNK
     Route: 065
     Dates: start: 2004, end: 20140221
  6. LERCANIDIPINE HYDROCHLORIDE [Suspect]
     Dosage: 10 MG, UNK
     Route: 065
     Dates: start: 20140303
  7. ASPIRIN [Suspect]
     Indication: ANTICOAGULANT THERAPY
     Dosage: 75 MG, UNK
     Route: 065
     Dates: start: 2006, end: 20140207
  8. AMLODIPINE [Concomitant]
     Dosage: UNK
     Route: 065

REACTIONS (11)
  - Rash pruritic [Not Recovered/Not Resolved]
  - Lip swelling [Not Recovered/Not Resolved]
  - Ocular hyperaemia [Not Recovered/Not Resolved]
  - Eye pruritus [Not Recovered/Not Resolved]
  - Rash macular [Not Recovered/Not Resolved]
  - Erythema [Not Recovered/Not Resolved]
  - Erythema [Not Recovered/Not Resolved]
  - Diarrhoea [Not Recovered/Not Resolved]
  - Abdominal pain upper [Not Recovered/Not Resolved]
  - Anaphylactic reaction [Unknown]
  - Drug ineffective [Unknown]
